FAERS Safety Report 14061392 (Version 2)
Quarter: 2017Q4

REPORT INFORMATION
  Report Type: Spontaneous
  Country: US (occurrence: US)
  Receive Date: 20171009
  Receipt Date: 20171011
  Transmission Date: 20180321
  Serious: Yes (Other)
  Sender: FDA-Public Use
  Company Number: US-009507513-1710USA001446

PATIENT
  Age: 40 Year
  Sex: Male

DRUGS (1)
  1. TEMODAR [Suspect]
     Active Substance: TEMOZOLOMIDE
     Indication: PRODUCT USED FOR UNKNOWN INDICATION

REACTIONS (3)
  - Muscle disorder [Recovered/Resolved]
  - Facial paralysis [Recovered/Resolved]
  - Loss of control of legs [Recovered/Resolved]

NARRATIVE: CASE EVENT DATE: 20150228
